FAERS Safety Report 9522276 (Version 1)
Quarter: 2013Q1

REPORT INFORMATION
  Report Type: Spontaneous
  Country: US (occurrence: None)
  Receive Date: 20130305
  Receipt Date: 20130305
  Transmission Date: 20140127
  Serious: Yes (Other)
  Sender: FDA-Public Use
  Company Number: 163-21880-12063730

PATIENT
  Age: 51 Year
  Sex: Male

DRUGS (1)
  1. REVLIMID (LENALIDOMIDE) (CAPSULES) [Suspect]
     Indication: PLASMA CELL MYELOMA
     Dosage: 25 MG, 14 IN 21 D, PO?
     Route: 048
     Dates: start: 20110420, end: 2011

REACTIONS (8)
  - Diarrhoea [None]
  - Fatigue [None]
  - Nausea [None]
  - Vomiting [None]
  - Rash [None]
  - Feeling abnormal [None]
  - Pruritus [None]
  - Pyrexia [None]
